FAERS Safety Report 22289560 (Version 1)
Quarter: 2023Q2

REPORT INFORMATION
  Report Type: Spontaneous
  Country: US (occurrence: US)
  Receive Date: 20230505
  Receipt Date: 20230505
  Transmission Date: 20230721
  Serious: Yes (Other)
  Sender: FDA-Public Use
  Company Number: US-ORGANON-O2304USA002183

PATIENT
  Sex: Female
  Weight: 135.87 kg

DRUGS (2)
  1. NEXPLANON [Suspect]
     Active Substance: ETONOGESTREL
     Indication: Contraception
     Dosage: 1 IMPLANT OF 68MG, RIGHT ARM
     Route: 059
     Dates: start: 20230223, end: 20230417
  2. KESIMPTA [Concomitant]
     Active Substance: OFATUMUMAB
     Dosage: WEEKLY X 3 WEEKS; STRENGTH:20 MG/0.4 ML
     Route: 058
     Dates: start: 202304

REACTIONS (5)
  - Device expulsion [Recovered/Resolved]
  - Pain [Recovering/Resolving]
  - Device placement issue [Recovered/Resolved]
  - Device breakage [Recovered/Resolved]
  - Device kink [Recovered/Resolved]

NARRATIVE: CASE EVENT DATE: 20230101
